FAERS Safety Report 10684704 (Version 1)
Quarter: 2014Q4

REPORT INFORMATION
  Report Type: Spontaneous
  Country: US (occurrence: None)
  Receive Date: 20141230
  Receipt Date: 20141230
  Transmission Date: 20150529
  Serious: Yes (Disabling, Other)
  Sender: FDA-Public Use
  Company Number: None

PATIENT
  Age: 59 Year
  Sex: Female
  Weight: 83.01 kg

DRUGS (1)
  1. INVOKANA [Suspect]
     Active Substance: CANAGLIFLOZIN
     Indication: DIABETES MELLITUS
     Dosage: 1 PILL
     Route: 048
     Dates: start: 20140301, end: 20141226

REACTIONS (5)
  - Muscle spasms [None]
  - Breast cancer [None]
  - Blood cholesterol increased [None]
  - Arthralgia [None]
  - Loss of consciousness [None]

NARRATIVE: CASE EVENT DATE: 20141228
